FAERS Safety Report 10082701 (Version 1)
Quarter: 2014Q2

REPORT INFORMATION
  Report Type: Spontaneous
  Country: US (occurrence: US)
  Receive Date: 20140416
  Receipt Date: 20140416
  Transmission Date: 20141212
  Serious: No
  Sender: FDA-Public Use
  Company Number: US-BAXTER-2014BAX017244

PATIENT
  Age: 38 Year
  Sex: Female

DRUGS (1)
  1. BUMINATE [Suspect]
     Indication: RHESUS HAEMOLYTIC DISEASE OF NEWBORN
     Route: 065

REACTIONS (2)
  - Exposure during pregnancy [Recovered/Resolved]
  - No adverse event [Recovered/Resolved]
